FAERS Safety Report 9174939 (Version 2)
Quarter: 2013Q1

REPORT INFORMATION
  Report Type: Spontaneous
  Country: GB (occurrence: None)
  Receive Date: 20130318
  Receipt Date: 20130319
  Transmission Date: 20140127
  Serious: Yes (Other)
  Sender: FDA-Public Use
  Company Number: AUR-APL-2013-02204

PATIENT
  Age: 42 Year
  Sex: Female
  Weight: 67.58 kg

DRUGS (3)
  1. LAMOTRIGINE  (LAMOTRIGINE) [Suspect]
     Indication: CONVULSION
     Dosage: 25  MG  (25  MG,  1  IN  1  D),  UNKNOWN?2  W
  2. CITALOPRAM  (CITALOPRAM) [Concomitant]
  3. MIRENA  (LEVONORGESTREL) [Concomitant]

REACTIONS (4)
  - Myalgia [None]
  - Arthralgia [None]
  - Headache [None]
  - Feeling abnormal [None]
